FAERS Safety Report 15490794 (Version 1)
Quarter: 2018Q4

REPORT INFORMATION
  Report Type: Spontaneous
  Country: US (occurrence: US)
  Receive Date: 20181011
  Receipt Date: 20181011
  Transmission Date: 20190205
  Serious: Yes (Hospitalization, Other)
  Sender: FDA-Public Use
  Company Number: US-009507513-1810USA001679

PATIENT
  Sex: Female

DRUGS (1)
  1. JANUMET XR [Suspect]
     Active Substance: METFORMIN HYDROCHLORIDE\SITAGLIPTIN PHOSPHATE
     Dosage: CONCENTRATION 50/1000. DOSE: 50/1000
     Route: 048

REACTIONS (6)
  - Limb injury [Unknown]
  - Adverse event [Unknown]
  - Stent placement [Unknown]
  - Concussion [Unknown]
  - Hyperhidrosis [Unknown]
  - Vertigo [Unknown]

NARRATIVE: CASE EVENT DATE: 201808
